FAERS Safety Report 19933360 (Version 2)
Quarter: 2021Q4

REPORT INFORMATION
  Report Type: Spontaneous
  Country: US (occurrence: US)
  Receive Date: 20211008
  Receipt Date: 20211110
  Transmission Date: 20220303
  Serious: No
  Sender: FDA-Public Use
  Company Number: US-PFIZER INC-202101191942

PATIENT
  Age: 5 Year
  Sex: Male
  Weight: 14.97 kg

DRUGS (2)
  1. GENOTROPIN [Suspect]
     Active Substance: SOMATROPIN
     Indication: Growth hormone deficiency
     Dosage: UNK UNK, 1X/DAY (0.8 DOSE UNITS UNSPECIFIED SHOT ONCE A DAY ON HIS SIDE AND HIS BUTT )
  2. GENOTROPIN [Suspect]
     Active Substance: SOMATROPIN
     Dosage: UNK UNK, 1X/DAY (0.8 DOSE UNITS UNSPECIFIED SHOT ONCE A DAY ON HIS SIDE AND HIS BUTT )

REACTIONS (5)
  - Drug dose omission by device [Unknown]
  - Device issue [Unknown]
  - Wrong technique in device usage process [Unknown]
  - Device breakage [Unknown]
  - Device leakage [Unknown]

NARRATIVE: CASE EVENT DATE: 20210909
